FAERS Safety Report 12920951 (Version 1)
Quarter: 2016Q4

REPORT INFORMATION
  Report Type: Report from Study
  Country: US (occurrence: US)
  Receive Date: 20161107
  Receipt Date: 20161107
  Transmission Date: 20170207
  Serious: Yes (Hospitalization)
  Sender: FDA-Public Use
  Company Number: US-JNJFOC-20160827353

PATIENT
  Age: 85 Year
  Sex: Female

DRUGS (13)
  1. FOLIC ACID. [Concomitant]
     Active Substance: FOLIC ACID
  2. CYANOCOBALAMIN. [Concomitant]
     Active Substance: CYANOCOBALAMIN
  3. CENTRUM SILVER [Concomitant]
     Active Substance: MINERALS\VITAMINS
  4. BAYER ASPIRIN [Concomitant]
     Active Substance: ASPIRIN
  5. VITAMIN D3 [Concomitant]
     Active Substance: CHOLECALCIFEROL
  6. BENICAR [Concomitant]
     Active Substance: OLMESARTAN MEDOXOMIL
  7. ZETIA [Concomitant]
     Active Substance: EZETIMIBE
  8. MYLANTA [Concomitant]
     Active Substance: ALUMINUM HYDROXIDE\DIMETHICONE\MAGNESIUM HYDROXIDE
  9. CALCIUM [Concomitant]
     Active Substance: CALCIUM
  10. METAMUCIL [Concomitant]
     Active Substance: PLANTAGO SEED
  11. IMBRUVICA [Suspect]
     Active Substance: IBRUTINIB
     Indication: CHRONIC LYMPHOCYTIC LEUKAEMIA
     Route: 048
     Dates: start: 20160818
  12. PREDNISONE. [Concomitant]
     Active Substance: PREDNISONE
  13. VITAMIN C [Concomitant]
     Active Substance: ASCORBIC ACID

REACTIONS (7)
  - Blister [Not Recovered/Not Resolved]
  - Rhinorrhoea [Unknown]
  - Epistaxis [Recovered/Resolved]
  - Herpes zoster [Unknown]
  - Pneumonia [Recovered/Resolved]
  - Pleural effusion [Unknown]
  - Abdominal discomfort [Recovered/Resolved]

NARRATIVE: CASE EVENT DATE: 20161020
